FAERS Safety Report 5803068-0 (Version None)
Quarter: 2008Q2

REPORT INFORMATION
  Report Type: 
  Country: None (occurrence: None)
  Receive Date: 20080626
  Receipt Date: 20080416
  Transmission Date: 20081010
  Serious: Yes (Hospitalization)
  Sender: FDA-Public Use
  Company Number: A03200801483

PATIENT
  Age: 42 Year
  Sex: Male
  Weight: 136.0791 kg

DRUGS (4)
  1. AMBIEN CR [Suspect]
     Indication: SLEEP APNOEA SYNDROME
     Dosage: 12.5 MG HS - ORAL
     Route: 048
     Dates: start: 20080401, end: 20080412
  2. OMEPRAZOLE [Concomitant]
  3. METFORMIN HCL [Concomitant]
  4. CELECOXIB [Concomitant]

REACTIONS (3)
  - ABNORMAL BEHAVIOUR [None]
  - FEELING ABNORMAL [None]
  - GLOBAL AMNESIA [None]
